FAERS Safety Report 9915789 (Version 1)
Quarter: 2014Q1

REPORT INFORMATION
  Report Type: Spontaneous
  Country: US (occurrence: None)
  Receive Date: 20140219
  Receipt Date: 20140219
  Transmission Date: 20141002
  Serious: Yes (Other)
  Sender: FDA-Public Use
  Company Number: None

PATIENT
  Age: 71 Year
  Sex: Male
  Weight: 85.28 kg

DRUGS (5)
  1. ANDROGEL [Suspect]
     Indication: TESTICULAR FAILURE
     Dosage: 2 PUMPS DAILY APPLIED TO SKIN, APPROX. 81/2 STILL TAKING
  2. CRANBERRY EXTRACT [Concomitant]
  3. KRILL TABS [Concomitant]
  4. COQ10 [Concomitant]
  5. PROBIOTIC [Concomitant]

REACTIONS (1)
  - Gynaecomastia [None]
